FAERS Safety Report 4541185-6 (Version None)
Quarter: 2004Q4

REPORT INFORMATION
  Report Type: 
  Country: None (occurrence: None)
  Receive Date: 20041227
  Receipt Date: 20041210
  Transmission Date: 20050328
  Serious: Yes (Hospitalization)
  Sender: FDA-Public Use
  Company Number: 2004-BP-05115NB

PATIENT
  Age: 81 Year
  Sex: Female

DRUGS (6)
  1. MOBIC [Suspect]
     Indication: BACK PAIN
     Dosage: 10 MG PO
     Route: 048
     Dates: end: 20040611
  2. BLOPRESS (CANDESARTAN CILEXETIL) [Suspect]
     Indication: HYPERTENSION
     Dosage: 4 MG PO
     Route: 048
     Dates: end: 20040611
  3. CEROCRAL (IFENPRODIL TARTRATE) [Suspect]
     Indication: DIZZINESS
     Dosage: 30 MG PO
     Route: 048
     Dates: end: 20040611
  4. MERISLON                (BETAHISTINE HYDROCHLORIDE) [Suspect]
     Indication: DIZZINESS
     Dosage: 18 MG PO
     Route: 048
     Dates: end: 20040611
  5. ADALAT CC [Suspect]
     Indication: HYPERTENSION
     Dosage: 40 MG PO
     Route: 048
     Dates: end: 20040611
  6. MYONAL (EPERISONE HYDROCHLORIDE) [Suspect]
     Indication: BACK PAIN
     Dosage: 150 MG PO
     Route: 048
     Dates: end: 20040611

REACTIONS (7)
  - ALANINE AMINOTRANSFERASE INCREASED [None]
  - ASPARTATE AMINOTRANSFERASE INCREASED [None]
  - BLOOD ALKALINE PHOSPHATASE INCREASED [None]
  - BLOOD LACTATE DEHYDROGENASE INCREASED [None]
  - GAMMA-GLUTAMYLTRANSFERASE INCREASED [None]
  - HEPATIC FUNCTION ABNORMAL [None]
  - LYMPHOCYTE STIMULATION TEST POSITIVE [None]
